FAERS Safety Report 18528135 (Version 1)
Quarter: 2020Q4

REPORT INFORMATION
  Report Type: Spontaneous
  Country: US (occurrence: US)
  Receive Date: 20201120
  Receipt Date: 20201120
  Transmission Date: 20210114
  Serious: Yes (Hospitalization, Other)
  Sender: FDA-Public Use
  Company Number: US-AMGEN-USASP2020186036

PATIENT
  Age: 82 Year
  Sex: Male

DRUGS (1)
  1. SENSIPAR [Suspect]
     Active Substance: CINACALCET HYDROCHLORIDE
     Indication: THYROID DISORDER
     Dosage: UNK
     Route: 065

REACTIONS (2)
  - Small intestinal perforation [Unknown]
  - Abscess intestinal [Unknown]

NARRATIVE: CASE EVENT DATE: 20200929
